FAERS Safety Report 7711402-X (Version None)
Quarter: 2011Q3

REPORT INFORMATION
  Report Type: 
  Country: None (occurrence: None)
  Receive Date: 20110823
  Receipt Date: 20110818
  Transmission Date: 20111222
  Serious: Yes (Death, Hospitalization, Other)
  Sender: FDA-Public Use
  Company Number: 2011SP036303

PATIENT
  Age: 62 Year
  Sex: Male

DRUGS (3)
  1. TEMODAL [Suspect]
     Indication: GLIOBLASTOMA MULTIFORME
     Dosage: 380 MG
     Dates: end: 20090902
  2. TEMODAL [Suspect]
     Indication: GLIOBLASTOMA MULTIFORME
     Dosage: 380 MG
     Dates: start: 20090603
  3. FRAXIPARINE (NADROPARIN CALCIUM) [Suspect]
     Indication: PRODUCT USED FOR UNKNOWN INDICATION

REACTIONS (4)
  - CEREBRAL THROMBOSIS [None]
  - PNEUMOCYSTIS JIROVECI INFECTION [None]
  - OEDEMA PERIPHERAL [None]
  - THROMBOCYTOPENIA [None]
